FAERS Safety Report 18208954 (Version 1)
Quarter: 2020Q3

REPORT INFORMATION
  Report Type: Spontaneous
  Country: US (occurrence: US)
  Receive Date: 20200828
  Receipt Date: 20200828
  Transmission Date: 20201103
  Serious: No
  Sender: FDA-Public Use
  Company Number: US-009507513-2006USA003637

PATIENT
  Sex: Female

DRUGS (2)
  1. ETONOGESTREL (+) ETHINYL ESTRADIOL [Suspect]
     Active Substance: ETHINYL ESTRADIOL\ETONOGESTREL
     Dosage: 1 RING, POTENCY: 2.7 MG/11.7 MG
     Route: 067
     Dates: start: 202003
  2. NUVARING [Suspect]
     Active Substance: ETHINYL ESTRADIOL\ETONOGESTREL
     Dosage: RING
     Route: 067
     Dates: start: 2012, end: 202003

REACTIONS (9)
  - Therapy change [Unknown]
  - Mood swings [Unknown]
  - Headache [Unknown]
  - Loss of libido [Unknown]
  - Dysmenorrhoea [Unknown]
  - Device expulsion [Unknown]
  - Acne [Unknown]
  - Device expulsion [Unknown]
  - Vulvovaginal discomfort [Unknown]

NARRATIVE: CASE EVENT DATE: 2020
